FAERS Safety Report 14293697 (Version 2)
Quarter: 2018Q1

REPORT INFORMATION
  Report Type: Spontaneous
  Country: VN (occurrence: VN)
  Receive Date: 20171216
  Receipt Date: 20180116
  Transmission Date: 20180509
  Serious: Yes (Death)
  Sender: FDA-Public Use
  Company Number: VN-ROCHE-2040360

PATIENT
  Age: 74 Year
  Sex: Male

DRUGS (1)
  1. ACTILYSE [Suspect]
     Active Substance: ALTEPLASE
     Indication: PULMONARY EMBOLISM
     Route: 065

REACTIONS (5)
  - Pulmonary embolism [Fatal]
  - Lung neoplasm malignant [Fatal]
  - Atrial thrombosis [Fatal]
  - Myocardial infarction [Fatal]
  - Arrhythmia [Fatal]
